FAERS Safety Report 7131426-3 (Version None)
Quarter: 2010Q4

REPORT INFORMATION
  Report Type: 
  Country: None (occurrence: None)
  Receive Date: 20101124
  Receipt Date: 20101124
  Transmission Date: 20110411
  Serious: Yes (Hospitalization)
  Sender: FDA-Public Use
  Company Number: None

PATIENT
  Age: 63 Year
  Sex: Male
  Weight: 107.5025 kg

DRUGS (6)
  1. ALIMTA [Suspect]
     Indication: SARCOMA
     Dosage: 1135 MG Q2 WKS. IV
     Route: 042
     Dates: start: 20101112
  2. TAXOTERE [Suspect]
     Indication: SARCOMA
     Dosage: 91 MG Q2 WKS. IV
     Route: 042
     Dates: start: 20101112
  3. FOLIC ACID [Concomitant]
  4. VITAMIN B-12 [Concomitant]
  5. LOVENOX [Concomitant]
  6. POTASSIUM [Concomitant]

REACTIONS (6)
  - GASTROINTESTINAL INFECTION [None]
  - INTESTINAL DILATATION [None]
  - INTESTINAL ISCHAEMIA [None]
  - NAUSEA [None]
  - PNEUMATOSIS INTESTINALIS [None]
  - VOMITING [None]
